FAERS Safety Report 25201145 (Version 1)
Quarter: 2025Q2

REPORT INFORMATION
  Report Type: Spontaneous
  Country: US (occurrence: None)
  Receive Date: 20250416
  Receipt Date: 20250416
  Transmission Date: 20250716
  Serious: Yes (Life-Threatening, Hospitalization)
  Sender: NORMON
  Company Number: US-MLMSERVICE-20250403-PI467600-00204-1

PATIENT
  Age: 32 Year
  Sex: Male

DRUGS (9)
  1. PANTOPRAZOLE [Suspect]
     Active Substance: PANTOPRAZOLE
  2. LOPERAMIDE [Suspect]
     Active Substance: LOPERAMIDE
  3. THIAMINE [Concomitant]
     Active Substance: THIAMINE
  4. FOLATE SODIUM [Concomitant]
     Active Substance: FOLATE SODIUM
  5. OCTREOTIDE [Concomitant]
     Active Substance: OCTREOTIDE
  6. CEFTRIAXONE [Concomitant]
     Active Substance: CEFTRIAXONE
  7. NOREPINEPHRINE [Concomitant]
     Active Substance: NOREPINEPHRINE
     Indication: Hypotension
  8. POTASSIUM [Concomitant]
     Active Substance: POTASSIUM
     Indication: Supplementation therapy
  9. MAGNESIUM [Concomitant]
     Active Substance: MAGNESIUM
     Indication: Supplementation therapy

REACTIONS (4)
  - Cardiac arrest [Unknown]
  - Ventricular tachycardia [Unknown]
  - Electrocardiogram QT prolonged [Recovering/Resolving]
  - Electrocardiogram T wave alternans [Unknown]
